FAERS Safety Report 18021970 (Version 2)
Quarter: 2020Q3

REPORT INFORMATION
  Report Type: Spontaneous
  Country: DE (occurrence: DE)
  Receive Date: 20200715
  Receipt Date: 20200715
  Transmission Date: 20201103
  Serious: Yes (Other)
  Sender: FDA-Public Use
  Company Number: DE-ROCHE-2639078

PATIENT
  Sex: Female

DRUGS (3)
  1. TAXOL [Suspect]
     Active Substance: PACLITAXEL
     Indication: HER2 POSITIVE BREAST CANCER
     Route: 065
  2. HERCEPTIN [Suspect]
     Active Substance: TRASTUZUMAB
     Indication: HER2 POSITIVE BREAST CANCER
     Route: 065
  3. PERJETA [Suspect]
     Active Substance: PERTUZUMAB
     Indication: HER2 POSITIVE BREAST CANCER
     Route: 065

REACTIONS (6)
  - Diarrhoea [Recovered/Resolved]
  - Nausea [Unknown]
  - Onychoclasis [Not Recovered/Not Resolved]
  - Metastases to eye [Not Recovered/Not Resolved]
  - Onychomadesis [Recovered/Resolved]
  - Eye oedema [Not Recovered/Not Resolved]
